FAERS Safety Report 17505090 (Version 2)
Quarter: 2021Q1

REPORT INFORMATION
  Report Type: Spontaneous
  Country: FR (occurrence: FR)
  Receive Date: 20200305
  Receipt Date: 20210212
  Transmission Date: 20210419
  Serious: Yes (Other)
  Sender: FDA-Public Use
  Company Number: FR-009507513-2002FRA010154

PATIENT
  Age: 44 Year
  Sex: Female
  Weight: 68.5 kg

DRUGS (1)
  1. CANCIDAS [Suspect]
     Active Substance: CASPOFUNGIN ACETATE
     Indication: CANDIDA INFECTION
     Dosage: 50 MILLIGRAM, QD, POWDER FOR SOLUTION FOR INFUSION
     Route: 042
     Dates: start: 20180315

REACTIONS (3)
  - Drug ineffective [Recovered/Resolved]
  - Product use issue [Unknown]
  - Drug-device interaction [Unknown]

NARRATIVE: CASE EVENT DATE: 20180324
